FAERS Safety Report 17973087 (Version 1)
Quarter: 2020Q3

REPORT INFORMATION
  Report Type: Spontaneous
  Country: US (occurrence: US)
  Receive Date: 20200701
  Receipt Date: 20200701
  Transmission Date: 20201103
  Serious: Yes (Life-Threatening, Hospitalization, Disabling)
  Sender: FDA-Public Use
  Company Number: None

PATIENT
  Age: 68 Year
  Sex: Female
  Weight: 47.25 kg

DRUGS (3)
  1. TIZANIDINE 2MG 4MG [Suspect]
     Active Substance: TIZANIDINE
     Indication: MUSCLE SPASMS
     Route: 048
  2. SEROQUEL [Suspect]
     Active Substance: QUETIAPINE FUMARATE
     Indication: ANXIETY
  3. MORPHINE [Suspect]
     Active Substance: MORPHINE

REACTIONS (8)
  - Mental status changes [None]
  - Renal impairment [None]
  - General physical health deterioration [None]
  - Aggression [None]
  - Dysphonia [None]
  - Anxiety [None]
  - Pharyngeal swelling [None]
  - Insomnia [None]

NARRATIVE: CASE EVENT DATE: 20200701
